FAERS Safety Report 14877550 (Version 1)
Quarter: 2018Q2

REPORT INFORMATION
  Report Type: Spontaneous
  Country: DE (occurrence: DE)
  Receive Date: 20180510
  Receipt Date: 20180510
  Transmission Date: 20180711
  Serious: Yes (Hospitalization)
  Sender: FDA-Public Use
  Company Number: DE-009507513-1805DEU003245

PATIENT
  Age: 49 Year
  Sex: Female

DRUGS (7)
  1. MIRTAZAPINE. [Suspect]
     Active Substance: MIRTAZAPINE
     Indication: DEPRESSION
     Dosage: (0-0-1) AT NIGHT
     Route: 065
  2. MILNACIPRAN [Suspect]
     Active Substance: MILNACIPRAN
     Dosage: 200 MG, QD
     Route: 048
  3. LAMOTRIGINE. [Suspect]
     Active Substance: LAMOTRIGINE
     Indication: EPILEPSY
     Dosage: (1-1-1-0)
     Route: 065
  4. MILNACIPRAN [Suspect]
     Active Substance: MILNACIPRAN
     Dosage: 50 MG, QOD
     Route: 048
  5. ESCITALOPRAM [Suspect]
     Active Substance: ESCITALOPRAM OXALATE
     Indication: DEPRESSION
     Dosage: (20MG-0MG-0MG-0MG) IN THE MORNING
     Route: 065
     Dates: start: 2014
  6. MIRTAZAPINE. [Suspect]
     Active Substance: MIRTAZAPINE
     Indication: DEPRESSION
     Dosage: AT NIGHT
     Route: 065
  7. LEVOTHYROXINE SODIUM. [Concomitant]
     Active Substance: LEVOTHYROXINE SODIUM
     Dosage: (1-0-0-0) IN THE MORNING
     Route: 065

REACTIONS (9)
  - Gamma-glutamyltransferase increased [Recovered/Resolved]
  - Listless [Unknown]
  - Off label use [Unknown]
  - Drug ineffective [Recovered/Resolved]
  - Normocytic anaemia [Unknown]
  - Alanine aminotransferase increased [Recovered/Resolved]
  - Aspartate aminotransferase increased [Recovered/Resolved]
  - Disturbance in attention [Unknown]
  - Depressive symptom [Recovered/Resolved]
